FAERS Safety Report 5937593-9 (Version None)
Quarter: 2008Q4

REPORT INFORMATION
  Report Type: 
  Country: None (occurrence: None)
  Receive Date: 20081031
  Receipt Date: 20081023
  Transmission Date: 20090506
  Serious: Yes (Hospitalization)
  Sender: FDA-Public Use
  Company Number: JACGER1999000707

PATIENT
  Sex: Female
  Weight: 46 kg

DRUGS (9)
  1. HALDOL [Suspect]
     Route: 048
     Dates: start: 19990705
  2. HALDOL [Suspect]
     Route: 048
     Dates: start: 19990705
  3. HALDOL [Suspect]
     Indication: SCHIZOAFFECTIVE DISORDER
     Route: 048
     Dates: start: 19990705
  4. DIPIPERON [Suspect]
     Indication: PSYCHOMOTOR HYPERACTIVITY
     Route: 048
     Dates: start: 19990706
  5. SOLIAN [Suspect]
     Route: 048
     Dates: start: 19990706
  6. SOLIAN [Suspect]
     Route: 048
     Dates: start: 19990706
  7. SOLIAN [Suspect]
     Route: 048
     Dates: start: 19990706
  8. SOLIAN [Suspect]
     Indication: SCHIZOAFFECTIVE DISORDER
     Route: 048
     Dates: start: 19990706
  9. AKINETON [Concomitant]
     Route: 048
     Dates: start: 19990707

REACTIONS (1)
  - PLEUROTHOTONUS [None]
